FAERS Safety Report 18109535 (Version 1)
Quarter: 2020Q3

REPORT INFORMATION
  Report Type: Spontaneous
  Country: NL (occurrence: NL)
  Receive Date: 20200804
  Receipt Date: 20200804
  Transmission Date: 20201103
  Serious: Yes (Other)
  Sender: FDA-Public Use
  Company Number: NL-ACCORD-194022

PATIENT
  Age: 71 Year
  Sex: Male
  Weight: 79 kg

DRUGS (4)
  1. SIMVASTATIN. [Suspect]
     Active Substance: SIMVASTATIN
     Indication: PROPHYLAXIS
     Dosage: STRENGTH 20MG, QD, START 40 MG DUE TO COMPLAINTS SINCE THE BEGINNING OF 2014 20MG
     Dates: start: 2012
  2. LISINOPRIL ACCORD [Concomitant]
     Active Substance: LISINOPRIL
     Dosage: 1 TIME PER DAY 1 PIECE(S)
     Dates: start: 201108
  3. CARBASALATE [Concomitant]
     Active Substance: CARBASPIRIN
     Dosage: 1 TIME PER DAY 1 PIECE(S)
     Dates: start: 2011
  4. METOPROLOL. [Concomitant]
     Active Substance: METOPROLOL
     Dosage: 1 TIME PER DAY 0.5 PIECE(S),STRENGTH 25MG
     Dates: start: 201108

REACTIONS (2)
  - Muscle rupture [Recovered/Resolved]
  - Myalgia [Not Recovered/Not Resolved]

NARRATIVE: CASE EVENT DATE: 2012
